FAERS Safety Report 8782834 (Version 1)
Quarter: 2012Q4

REPORT INFORMATION
  Report Type: 
  Country: FR (occurrence: FR)
  Receive Date: 20120913
  Receipt Date: 20120913
  Transmission Date: 20130627
  Serious: Yes (Hospitalization)
  Sender: FDA-Public Use
  Company Number: FR-GLAXOSMITHKLINE-B0827266A

PATIENT
  Age: 60 Year
  Sex: Male
  Weight: 65 kg

DRUGS (12)
  1. ARIXTRA [Suspect]
     Indication: PULMONARY EMBOLISM
     Dosage: 7.5MG Per day
     Route: 058
     Dates: start: 201202, end: 20120722
  2. FURADANTIN [Suspect]
     Indication: PRODUCT USED FOR UNKNOWN INDICATION
     Dosage: 100MG Per day
     Route: 048
     Dates: end: 20120723
  3. RITUXIMAB [Concomitant]
     Dates: start: 20120404, end: 20120615
  4. CYTARABINE [Concomitant]
     Dates: start: 20120404, end: 20120615
  5. CISPLATIN [Concomitant]
     Dates: start: 20120404, end: 20120615
  6. DEXAMETHASONE [Concomitant]
     Dates: start: 20120404, end: 20120615
  7. ALLOPURINOL [Concomitant]
     Dosage: 300MG per day
  8. DEPAKINE [Concomitant]
  9. RISPERDAL [Concomitant]
  10. XANAX [Concomitant]
  11. LARGACTIL [Concomitant]
     Indication: PHOBIA
  12. SEROPRAM [Concomitant]
     Dates: start: 201206, end: 201206

REACTIONS (5)
  - Haematoma [Recovering/Resolving]
  - Pain in extremity [Recovering/Resolving]
  - Dysstasia [Recovering/Resolving]
  - Joint swelling [Recovering/Resolving]
  - Incorrect drug administration duration [Unknown]
